FAERS Safety Report 8436948-0 (Version None)
Quarter: 2012Q2

REPORT INFORMATION
  Report Type: 
  Country: None (occurrence: None)
  Receive Date: 20120614
  Receipt Date: 20120125
  Transmission Date: 20120825
  Serious: Yes (Other)
  Sender: FDA-Public Use
  Company Number: US-AMGEN-USASP2012005432

PATIENT
  Age: 85 Year
  Sex: Female

DRUGS (6)
  1. ARANESP [Suspect]
     Indication: MULTIPLE MYELOMA
  2. IBUPROFEN [Concomitant]
     Dosage: UNK
  3. ZOMETA [Concomitant]
     Dosage: UNK
  4. ZEBETA [Concomitant]
     Dosage: UNK
  5. XANAX [Concomitant]
     Dosage: UNK
  6. ARANESP [Suspect]
     Indication: ANAEMIA OF MALIGNANT DISEASE
     Dosage: 200 MUG, Q2WK
     Dates: start: 20110101

REACTIONS (10)
  - ANXIETY [None]
  - HAEMOGLOBIN DECREASED [None]
  - NASAL DRYNESS [None]
  - URINARY TRACT INFECTION [None]
  - LATEX ALLERGY [None]
  - MALAISE [None]
  - DYSPNOEA [None]
  - DRY THROAT [None]
  - WHITE BLOOD CELL COUNT DECREASED [None]
  - FEELING ABNORMAL [None]
